FAERS Safety Report 7464447-1 (Version None)
Quarter: 2011Q2

REPORT INFORMATION
  Report Type: 
  Country: None (occurrence: None)
  Receive Date: 20110509
  Receipt Date: 20110425
  Transmission Date: 20111010
  Serious: Yes (Hospitalization)
  Sender: FDA-Public Use
  Company Number: FR-JNJFOC-20110411299

PATIENT
  Age: 45 Year
  Sex: Male

DRUGS (3)
  1. CEFPODOXIME PROXETIL [Suspect]
     Indication: INFLUENZA
     Route: 048
  2. LEVOFLOXACIN [Suspect]
     Indication: INFLUENZA
     Route: 048
  3. IBUPROFEN [Suspect]
     Indication: INFLUENZA
     Route: 048

REACTIONS (2)
  - TOXICITY TO VARIOUS AGENTS [None]
  - NEUTROPENIA [None]
